FAERS Safety Report 8046122 (Version 2)
Quarter: 2014Q1

REPORT INFORMATION
  Report Type: Spontaneous
  Country: US (occurrence: US)
  Receive Date: 20110720
  Receipt Date: 20140326
  Transmission Date: 20141002
  Serious: Yes (Hospitalization, Other)
  Sender: FDA-Public Use
  Company Number: US-BAYER-2011-061609

PATIENT
  Age: 46 Year
  Sex: Female
  Weight: 68.93 kg

DRUGS (7)
  1. YAZ [Suspect]
     Indication: MENORRHAGIA
     Dosage: UNK
     Dates: start: 2001
  2. YAZ [Suspect]
     Indication: PREMENSTRUAL SYNDROME
  3. YAZ [Suspect]
     Indication: ACNE
  4. XANAX [Concomitant]
  5. HYDROCODONE W/APAP [Concomitant]
     Dosage: 5-500
  6. SKELAXIN [Concomitant]
     Dosage: 800 MG, UNK
  7. NAPROXEN [Concomitant]
     Dosage: 500 MG, UNK

REACTIONS (8)
  - Pulmonary embolism [Recovered/Resolved]
  - Deep vein thrombosis [Recovered/Resolved]
  - Cholecystectomy [None]
  - Psychiatric symptom [None]
  - Injury [Recovered/Resolved]
  - Pain [None]
  - Anxiety [None]
  - Pain [Recovered/Resolved]
